FAERS Safety Report 5600884-5 (Version None)
Quarter: 2008Q1

REPORT INFORMATION
  Report Type: 
  Country: None (occurrence: None)
  Receive Date: 20080124
  Receipt Date: 20080116
  Transmission Date: 20080703
  Serious: Yes (Other)
  Sender: FDA-Public Use
  Company Number: GB-BAYER-200810096BNE

PATIENT
  Age: 69 Year
  Sex: Male

DRUGS (4)
  1. CIPROFLOXACIN [Suspect]
     Indication: URINARY TRACT INFECTION
     Dosage: TOTAL DAILY DOSE: 500 MG  UNIT DOSE: 250 MG
     Route: 048
     Dates: start: 20071114, end: 20071120
  2. INDERAL LA [Concomitant]
     Route: 048
  3. INFLUENZA VACCINE (SPLIT VIRION, INACTIVATED) [Concomitant]
     Route: 030
     Dates: start: 20071027
  4. SUMATRIPTAN SUCCINATE [Concomitant]
     Indication: MIGRAINE
     Route: 048
     Dates: start: 20071024

REACTIONS (5)
  - ABDOMINAL PAIN [None]
  - BLOOD PRESSURE DECREASED [None]
  - DYSPHAGIA [None]
  - HYPERHIDROSIS [None]
  - MOUTH ULCERATION [None]
